FAERS Safety Report 15885007 (Version 1)
Quarter: 2019Q1

REPORT INFORMATION
  Report Type: Spontaneous
  Country: FR (occurrence: FR)
  Receive Date: 20190129
  Receipt Date: 20190129
  Transmission Date: 20190417
  Serious: Yes (Other)
  Sender: FDA-Public Use
  Company Number: FR-PFIZER INC-2019034967

PATIENT
  Age: 67 Year
  Sex: Female

DRUGS (8)
  1. DALACINE [Suspect]
     Active Substance: CLINDAMYCIN
     Indication: SEPSIS
     Dosage: 6 DF, 1X/DAY
     Route: 048
     Dates: start: 20181113, end: 20181204
  2. XATRAL [ALFUZOSIN HYDROCHLORIDE] [Suspect]
     Active Substance: ALFUZOSIN
     Dosage: 1 DF, 1X/DAY
     Route: 048
     Dates: start: 20181122, end: 20181204
  3. MIRTAZAPINE BLUEFISH [Suspect]
     Active Substance: MIRTAZAPINE
     Indication: DEPRESSION
     Dosage: 15 MG, 1X/DAY
     Route: 048
     Dates: start: 20181118, end: 20181204
  4. STILNOX [Concomitant]
     Active Substance: ZOLPIDEM TARTRATE
     Indication: INSOMNIA
     Dosage: 10 MG, UNK
     Route: 048
     Dates: start: 20181118
  5. PANTOPRAZOLE [Concomitant]
     Active Substance: PANTOPRAZOLE
     Route: 048
  6. NOVORAPID [Concomitant]
     Active Substance: INSULIN ASPART
     Indication: DIABETES MELLITUS
     Route: 058
  7. BISOPROLOL FUMARATE. [Concomitant]
     Active Substance: BISOPROLOL FUMARATE
     Indication: HYPERTENSION
     Dosage: 1.25 MG, UNK
     Route: 048
  8. LANTUS [Concomitant]
     Active Substance: INSULIN GLARGINE
     Indication: DIABETES MELLITUS
     Route: 058

REACTIONS (1)
  - Hepatitis cholestatic [Recovering/Resolving]

NARRATIVE: CASE EVENT DATE: 20181205
